FAERS Safety Report 9267686 (Version 2)
Quarter: 2013Q4

REPORT INFORMATION
  Report Type: Spontaneous
  Country: GB (occurrence: GB)
  Receive Date: 20130502
  Receipt Date: 20131022
  Transmission Date: 20140711
  Serious: Yes (Other)
  Sender: FDA-Public Use
  Company Number: GB-TEVA-402117ISR

PATIENT
  Age: 76 Year
  Sex: Male
  Weight: 67 kg

DRUGS (11)
  1. MELOXICAM [Suspect]
     Indication: RHEUMATOID ARTHRITIS
     Dates: start: 20130314, end: 20130407
  2. BISOPROLOL [Concomitant]
     Dates: start: 20121203, end: 20130128
  3. RAMIPRIL [Concomitant]
     Dates: start: 20121203
  4. CO-CODAMOL [Concomitant]
     Dates: start: 20121217
  5. FOLIC ACID [Concomitant]
     Dates: start: 20121220
  6. FUROSEMIDE [Concomitant]
     Dates: start: 20121220
  7. METHOTREXATE [Concomitant]
     Dates: start: 20121220
  8. MOVICOL [Concomitant]
     Dates: start: 20130122, end: 20130216
  9. NEBIVOLOL [Concomitant]
     Dates: start: 20130128, end: 20130208
  10. HYDROCORTISONE [Concomitant]
     Dates: start: 20130308, end: 20130322
  11. TRIMETHOPRIM [Concomitant]
     Dates: start: 20130308, end: 20130315

REACTIONS (3)
  - Retinal vein occlusion [Recovering/Resolving]
  - Visual impairment [Unknown]
  - Retinal vein thrombosis [Unknown]
